FAERS Safety Report 16097109 (Version 1)
Quarter: 2019Q1

REPORT INFORMATION
  Report Type: Spontaneous
  Country: JP (occurrence: JP)
  Receive Date: 20190320
  Receipt Date: 20190320
  Transmission Date: 20190418
  Serious: Yes (Death, Hospitalization, Other)
  Sender: FDA-Public Use
  Company Number: JP-AMNEAL PHARMACEUTICALS-2019AMN00331

PATIENT
  Age: 69 Year
  Sex: Male

DRUGS (1)
  1. CAPECITABINE. [Suspect]
     Active Substance: CAPECITABINE
     Indication: RECTAL CANCER
     Dosage: 3600 MG/DAY
     Route: 065

REACTIONS (6)
  - Staphylococcal infection [Unknown]
  - Pneumonia staphylococcal [Unknown]
  - Cytomegalovirus enterocolitis [Fatal]
  - Gastrointestinal haemorrhage [Fatal]
  - Bone marrow failure [Unknown]
  - Multiple organ dysfunction syndrome [Unknown]
